FAERS Safety Report 9543447 (Version 1)
Quarter: 2013Q2

REPORT INFORMATION
  Report Type: Spontaneous
  Country: US (occurrence: None)
  Receive Date: 20130524
  Receipt Date: 20130524
  Transmission Date: 20140414
  Serious: Yes (Other)
  Sender: FDA-Public Use
  Company Number: PHEH2013US001801

PATIENT
  Age: 26 Year
  Sex: Female
  Weight: 68 kg

DRUGS (3)
  1. GILENYA (FINGOLIMOD) CAPSULE, 0.5MG [Suspect]
     Indication: RELAPSING-REMITTING MULTIPLE SCLEROSIS
     Route: 048
     Dates: start: 20130117
  2. ERGOCALCIFEROL (ERGOCALCIFEROL) [Concomitant]
  3. GIANVI (DROSPIRENONE, ETHINYLESTRADIOL) [Concomitant]

REACTIONS (1)
  - Chest discomfort [None]
